FAERS Safety Report 16755324 (Version 3)
Quarter: 2019Q3

REPORT INFORMATION
  Report Type: Spontaneous
  Country: FR (occurrence: FR)
  Receive Date: 20190829
  Receipt Date: 20190924
  Transmission Date: 20191005
  Serious: Yes (Hospitalization, Other)
  Sender: FDA-Public Use
  Company Number: FR-PFIZER INC-2019371521

PATIENT
  Age: 33 Year
  Sex: Female
  Weight: 86.3 kg

DRUGS (14)
  1. URBANYL [Suspect]
     Active Substance: CLOBAZAM
     Indication: EPILEPSY
     Dosage: 20 MG, 1X/DAY
     Route: 048
     Dates: start: 2013
  2. SABRIL [Suspect]
     Active Substance: VIGABATRIN
     Indication: EPILEPSY
     Dosage: UNK
     Route: 048
  3. ZARONTIN [Suspect]
     Active Substance: ETHOSUXIMIDE
     Indication: EPILEPSY
     Dosage: UNK
     Route: 048
  4. ZEBINIX [Suspect]
     Active Substance: ESLICARBAZEPINE ACETATE
     Indication: EPILEPSY
     Dosage: 1 DF, 1X/DAY
     Route: 048
     Dates: start: 20171212
  5. KEPPRA [Suspect]
     Active Substance: LEVETIRACETAM
     Indication: EPILEPSY
     Dosage: UNK
     Route: 048
     Dates: start: 2013, end: 20151215
  6. DI-HYDAN [Suspect]
     Active Substance: PHENYTOIN
     Indication: EPILEPSY
     Dosage: UNK
     Route: 048
  7. DEPAKINE [VALPROIC ACID] [Suspect]
     Active Substance: VALPROIC ACID
     Indication: EPILEPSY
     Dosage: UNK
     Route: 048
     Dates: start: 1989, end: 1989
  8. VALIUM [Suspect]
     Active Substance: DIAZEPAM
     Indication: FEBRILE CONVULSION
     Dosage: UNK
     Route: 048
     Dates: start: 1988, end: 1988
  9. LAMICTAL [Suspect]
     Active Substance: LAMOTRIGINE
     Indication: EPILEPSY
     Dosage: UNK
     Route: 048
     Dates: start: 2016, end: 20170620
  10. EPITOMAX [Suspect]
     Active Substance: TOPIRAMATE
     Dosage: 2 DF, 1X/DAY
     Route: 048
     Dates: start: 20160624, end: 20190416
  11. VIMPAT [Suspect]
     Active Substance: LACOSAMIDE
     Indication: EPILEPSY
     Dosage: UNK
     Route: 048
     Dates: start: 20151215, end: 20160624
  12. FYCOMPA [Suspect]
     Active Substance: PERAMPANEL
     Indication: EPILEPSY
     Dosage: UNK
     Route: 048
     Dates: start: 20170620, end: 20171212
  13. GARDENAL SODIUM [Suspect]
     Active Substance: PHENOBARBITAL
     Indication: EPILEPSY
     Dosage: UNK
     Route: 048
  14. TEGRETOL [Suspect]
     Active Substance: CARBAMAZEPINE
     Indication: EPILEPSY
     Dosage: UNK
     Route: 048

REACTIONS (4)
  - Acute pulmonary oedema [Recovered/Resolved]
  - Oedema peripheral [Recovered/Resolved]
  - Myocarditis [Not Recovered/Not Resolved]
  - Mitral valve disease [Not Recovered/Not Resolved]

NARRATIVE: CASE EVENT DATE: 201906
